FAERS Safety Report 8013684-6 (Version None)
Quarter: 2011Q4

REPORT INFORMATION
  Report Type: 
  Country: None (occurrence: None)
  Receive Date: 20111229
  Receipt Date: 20111221
  Transmission Date: 20120403
  Serious: Yes (Hospitalization)
  Sender: FDA-Public Use
  Company Number: FR-PFIZER INC-2011295919

PATIENT
  Age: 61 Year
  Sex: Male

DRUGS (4)
  1. CYTARABINE [Suspect]
     Indication: MANTLE CELL LYMPHOMA RECURRENT
     Dosage: UNK
     Dates: start: 20111111
  2. RITUXIMAB [Suspect]
     Indication: MANTLE CELL LYMPHOMA RECURRENT
     Dosage: UNK
     Dates: start: 20111111
  3. DEXAMETHASONE [Suspect]
     Indication: MANTLE CELL LYMPHOMA RECURRENT
     Dosage: UNK
     Dates: start: 20111111
  4. TEMSIROLIMUS [Suspect]
     Indication: MANTLE CELL LYMPHOMA RECURRENT
     Dosage: 25 MG, 1X/DAY
     Dates: start: 20111111

REACTIONS (2)
  - VOMITING [None]
  - CLOSTRIDIUM DIFFICILE COLITIS [None]
